FAERS Safety Report 4377570-5 (Version None)
Quarter: 2004Q2

REPORT INFORMATION
  Report Type: 
  Country: None (occurrence: None)
  Receive Date: 20040608
  Receipt Date: 20040527
  Transmission Date: 20050107
  Serious: Yes (Hospitalization)
  Sender: FDA-Public Use
  Company Number: 04P-161-0254157-00

PATIENT
  Age: 56 Year
  Sex: Male

DRUGS (3)
  1. TARKA [Suspect]
     Indication: HYPERTENSION
     Dosage: 1 TABLET, 1.5 MG/180 MG, PER ORAL
     Route: 048
  2. HONEY (HONEY) [Suspect]
     Indication: DRUG USE FOR UNKNOWN INDICATION
     Dosage: 30 MG, ONCE, ORAL
     Route: 048
  3. DOXAZOSIN [Concomitant]

REACTIONS (6)
  - ATRIOVENTRICULAR BLOCK [None]
  - DRUG INTERACTION [None]
  - ELECTROCARDIOGRAM PR PROLONGATION [None]
  - FOOD INTERACTION [None]
  - PALPITATIONS [None]
  - SINOATRIAL BLOCK [None]
